FAERS Safety Report 9526269 (Version 2)
Quarter: 2014Q1

REPORT INFORMATION
  Report Type: Spontaneous
  Country: FI (occurrence: FI)
  Receive Date: 20130916
  Receipt Date: 20140121
  Transmission Date: 20141002
  Serious: Yes (Hospitalization)
  Sender: FDA-Public Use
  Company Number: FI-BAYER-2013-107945

PATIENT
  Age: 52 Year
  Sex: Female

DRUGS (3)
  1. AVELOX [Suspect]
     Indication: PNEUMONIA
     Dosage: DAILY DOSE 400 MG
     Route: 048
     Dates: start: 20130820, end: 20130901
  2. SOMAC [Concomitant]
  3. AVAMYS [Concomitant]

REACTIONS (5)
  - Eosinophilic pneumonia [None]
  - Eosinophilia [Not Recovered/Not Resolved]
  - Cough [None]
  - Dyspnoea [None]
  - Pyrexia [None]
